FAERS Safety Report 5032593-8 (Version None)
Quarter: 2006Q2

REPORT INFORMATION
  Report Type: 
  Country: None (occurrence: None)
  Receive Date: 20060622
  Receipt Date: 20060612
  Transmission Date: 20061013
  Serious: Yes (Congenital Anomaly, Other)
  Sender: FDA-Public Use
  Company Number: US-BRISTOL-MYERS SQUIBB COMPANY-13409891

PATIENT
  Age: 26 Year
  Sex: Female

DRUGS (3)
  1. REYATAZ [Suspect]
     Indication: HIV INFECTION
     Route: 048
     Dates: end: 20060315
  2. EPIVIR [Suspect]
     Indication: HIV INFECTION
     Route: 048
     Dates: end: 20060315
  3. VIREAD [Suspect]
     Indication: HIV INFECTION
     Route: 048
     Dates: end: 20060315

REACTIONS (6)
  - ABORTION INDUCED [None]
  - CONGENITAL GASTRIC ANOMALY [None]
  - HYDROCEPHALUS [None]
  - PREGNANCY [None]
  - TALIPES [None]
  - UMBILICAL CORD ABNORMALITY [None]
